FAERS Safety Report 5828588-4 (Version None)
Quarter: 2008Q3

REPORT INFORMATION
  Report Type: 
  Country: None (occurrence: None)
  Receive Date: 20080731
  Receipt Date: 20080729
  Transmission Date: 20090109
  Serious: Yes (Hospitalization)
  Sender: FDA-Public Use
  Company Number: FR-BRISTOL-MYERS SQUIBB COMPANY-14282065

PATIENT
  Age: 79 Year
  Sex: Female

DRUGS (8)
  1. COAPROVEL TABS 300MG/12.5MG [Suspect]
     Route: 048
     Dates: start: 20070101, end: 20080101
  2. BACTRIM [Suspect]
     Route: 048
     Dates: start: 20080520
  3. PYOSTACINE [Suspect]
     Route: 048
     Dates: start: 20080517, end: 20080520
  4. LASIX [Concomitant]
     Dosage: 1 DOSAGE FORM= 40(UNIT NOT SPECIFIED)
     Dates: start: 20070701
  5. AMLOR [Concomitant]
     Dosage: 1 DOSAGE FORM = 10(UNIT NOT SPECIFIED)
     Dates: start: 20070501
  6. MEDIATOR [Concomitant]
     Dosage: 1 DOSAGE FORM = 150(UNIT NOT SPECIFIED)
     Dates: start: 20080502
  7. COUMADIN [Concomitant]
     Dates: start: 20020601
  8. ATARAX [Concomitant]
     Dosage: 1 DOSAGE FORM = 25(UNIT NOT SPECIFIED).
     Dates: start: 20041201

REACTIONS (3)
  - ERYSIPELAS [None]
  - GENERAL PHYSICAL HEALTH DETERIORATION [None]
  - PUSTULAR PSORIASIS [None]
